FAERS Safety Report 22966276 (Version 3)
Quarter: 2023Q4

REPORT INFORMATION
  Report Type: Report from Study
  Country: US (occurrence: US)
  Receive Date: 20230921
  Receipt Date: 20231016
  Transmission Date: 20240110
  Serious: Yes (Hospitalization)
  Sender: FDA-Public Use
  Company Number: US-DECIPHERA PHARMACEUTICALS LLC-2023US000840

PATIENT
  Age: 84 Year
  Sex: Male
  Weight: 50.34 kg

DRUGS (2)
  1. QINLOCK [Suspect]
     Active Substance: RIPRETINIB
     Indication: Gastrointestinal stromal tumour
     Dosage: 150 MILLIGRAM, QD
     Route: 048
  2. QINLOCK [Suspect]
     Active Substance: RIPRETINIB
     Dosage: 100 MILLIGRAM, QD
     Route: 048

REACTIONS (7)
  - Hospitalisation [Unknown]
  - Myocardial infarction [Unknown]
  - Adverse event [Unknown]
  - Skin exfoliation [Unknown]
  - Fatigue [Unknown]
  - Weight decreased [Unknown]
  - Underdose [Unknown]

NARRATIVE: CASE EVENT DATE: 20230913
